FAERS Safety Report 8198688-5 (Version None)
Quarter: 2012Q1

REPORT INFORMATION
  Report Type: 
  Country: None (occurrence: None)
  Receive Date: 20120309
  Receipt Date: 20120301
  Transmission Date: 20120608
  Serious: Yes (Other)
  Sender: FDA-Public Use
  Company Number: FR-ELI_LILLY_AND_COMPANY-FR201203000032

PATIENT
  Sex: Male

DRUGS (8)
  1. PRIMPERAN TAB [Concomitant]
     Dosage: 60 MG, UNK
     Route: 042
     Dates: start: 20111027, end: 20111027
  2. ACETAMINOPHEN [Concomitant]
     Indication: ABDOMINAL PAIN
     Dosage: 4 G, QD
     Route: 048
  3. OXYCODONE HCL [Concomitant]
     Indication: ABDOMINAL PAIN
     Dosage: UNK
     Route: 048
  4. CREON [Concomitant]
     Indication: PANCREATIC CARCINOMA
     Route: 048
  5. INSULIN [Concomitant]
     Indication: DIABETES MELLITUS
     Route: 058
  6. GEMZAR [Suspect]
     Indication: PANCREATIC CARCINOMA
     Dosage: UNK
     Route: 042
     Dates: start: 20101027
  7. LYRICA [Concomitant]
     Indication: ABDOMINAL PAIN
     Dosage: 75 MG, QD
     Route: 048
  8. DURAGESIC-100 [Concomitant]
     Indication: ABDOMINAL PAIN
     Dosage: 50 UG, EVERY HOUR (8.4 MG/21CM2)
     Dates: start: 20111017

REACTIONS (1)
  - ANGINA PECTORIS [None]
